FAERS Safety Report 9516665 (Version 2)
Quarter: 2013Q3

REPORT INFORMATION
  Report Type: Spontaneous
  Country: IT (occurrence: IT)
  Receive Date: 20130911
  Receipt Date: 20130917
  Transmission Date: 20140515
  Serious: Yes (Hospitalization)
  Sender: FDA-Public Use
  Company Number: IT-ASTRAZENECA-2013SE67165

PATIENT
  Age: 20301 Day
  Sex: Female

DRUGS (5)
  1. SEROQUEL [Suspect]
     Route: 048
     Dates: start: 20130901, end: 20130901
  2. RIVOTRIL [Suspect]
     Dosage: 2.5MG/ML; 2 DF, ONCE/SINGLE ADMINISTRATION
     Route: 048
     Dates: start: 20130901, end: 20130901
  3. ZOLOFT [Suspect]
     Route: 048
     Dates: start: 20130901, end: 20130901
  4. PLAVIX [Concomitant]
  5. TORVAST [Concomitant]

REACTIONS (3)
  - Drug abuse [Recovering/Resolving]
  - Intentional self-injury [Recovering/Resolving]
  - Sopor [Recovering/Resolving]
